FAERS Safety Report 7414596-9 (Version None)
Quarter: 2011Q2

REPORT INFORMATION
  Report Type: 
  Country: None (occurrence: None)
  Receive Date: 20110411
  Receipt Date: 20110411
  Transmission Date: 20111010
  Serious: Yes (Hospitalization)
  Sender: FDA-Public Use
  Company Number: None

PATIENT
  Age: 62 Year
  Sex: Male
  Weight: 117 kg

DRUGS (1)
  1. TERAZOSIN HCL [Suspect]
     Indication: BENIGN PROSTATIC HYPERPLASIA
     Dosage: 5 MG EVERY DAY PO
     Route: 048
     Dates: start: 20100704, end: 20110401

REACTIONS (3)
  - INCORRECT DOSE ADMINISTERED [None]
  - HYPOTENSION [None]
  - SYNCOPE [None]
